FAERS Safety Report 12241847 (Version 1)
Quarter: 2016Q2

REPORT INFORMATION
  Report Type: Spontaneous
  Country: GB (occurrence: GB)
  Receive Date: 20160406
  Receipt Date: 20160406
  Transmission Date: 20160815
  Serious: Yes (Death, Other)
  Sender: FDA-Public Use
  Company Number: GB-TEVA-648660ACC

PATIENT
  Age: 75 Year
  Sex: Male

DRUGS (8)
  1. BENDROFLUMETHIAZIDE [Concomitant]
     Active Substance: BENDROFLUMETHIAZIDE
  2. LATANOPROST. [Concomitant]
     Active Substance: LATANOPROST
  3. PARACETAMOL [Concomitant]
     Active Substance: ACETAMINOPHEN
  4. WARFARIN [Suspect]
     Active Substance: WARFARIN
     Route: 048
     Dates: end: 20151227
  5. FINASTERIDE. [Concomitant]
     Active Substance: FINASTERIDE
  6. ATORVASTATIN [Concomitant]
     Active Substance: ATORVASTATIN
  7. TIMOLOL. [Concomitant]
     Active Substance: TIMOLOL
  8. METFORMIN [Concomitant]
     Active Substance: METFORMIN HYDROCHLORIDE

REACTIONS (2)
  - Subdural haematoma [Fatal]
  - Anticoagulation drug level abnormal [Not Recovered/Not Resolved]
